FAERS Safety Report 9732176 (Version 2)
Quarter: 2014Q2

REPORT INFORMATION
  Report Type: Report from Study
  Country: MX (occurrence: MX)
  Receive Date: 20131205
  Receipt Date: 20140506
  Transmission Date: 20141212
  Serious: Yes (Other)
  Sender: FDA-Public Use
  Company Number: PHHY2013MX141871

PATIENT
  Age: 54 Year
  Sex: Female

DRUGS (2)
  1. EXFORGE [Suspect]
     Indication: HYPERTENSION
     Dosage: 1 DF (160/10 MG), DAILY
     Route: 048
     Dates: start: 201012
  2. TENORMIN [Concomitant]
     Indication: BLOOD PRESSURE ABNORMAL
     Dosage: 1 UKN, DAILY
     Dates: start: 200912

REACTIONS (3)
  - Diabetes mellitus [Recovering/Resolving]
  - Renal impairment [Not Recovered/Not Resolved]
  - Blood pressure decreased [Recovered/Resolved]
